FAERS Safety Report 25047824 (Version 3)
Quarter: 2025Q1

REPORT INFORMATION
  Report Type: Spontaneous
  Country: US (occurrence: US)
  Receive Date: 20250306
  Receipt Date: 20250320
  Transmission Date: 20250409
  Serious: No
  Sender: DAIICHI
  Company Number: US-DAIICHI SANKYO, INC.-DS-2025-129164-USAA

PATIENT
  Sex: Female

DRUGS (2)
  1. TURALIO [Suspect]
     Active Substance: PEXIDARTINIB HYDROCHLORIDE
     Indication: Connective tissue neoplasm
     Dosage: 125MG 2 CAPSULES BY MOUTH TWICE DAILY (AM+PM)
     Route: 048
     Dates: start: 20250224
  2. TURALIO [Suspect]
     Active Substance: PEXIDARTINIB HYDROCHLORIDE
     Indication: Soft tissue neoplasm

REACTIONS (13)
  - Mycobacterium tuberculosis complex test positive [Unknown]
  - Abdominal pain upper [Unknown]
  - Tongue disorder [Unknown]
  - Feeling hot [Unknown]
  - Flushing [Unknown]
  - Tongue discomfort [Unknown]
  - Renal neoplasm [Unknown]
  - Nausea [Unknown]
  - Vomiting [Unknown]
  - Nausea [Not Recovered/Not Resolved]
  - Blood lactate dehydrogenase increased [Not Recovered/Not Resolved]
  - Motion sickness [Not Recovered/Not Resolved]
  - Bradykinesia [Not Recovered/Not Resolved]
